FAERS Safety Report 5602819-8 (Version None)
Quarter: 2008Q1

REPORT INFORMATION
  Report Type: 
  Country: None (occurrence: None)
  Receive Date: 20080125
  Receipt Date: 20080115
  Transmission Date: 20080703
  Serious: Yes (Other)
  Sender: FDA-Public Use
  Company Number: FR-GILEAD-2008-0014978

PATIENT
  Sex: Female

DRUGS (3)
  1. TRUVADA [Suspect]
  2. TELZIR [Concomitant]
  3. NORVIR [Concomitant]

REACTIONS (3)
  - ABDOMINAL PAIN [None]
  - MYALGIA [None]
  - SLEEP DISORDER [None]
